FAERS Safety Report 21046249 (Version 5)
Quarter: 2022Q4

REPORT INFORMATION
  Report Type: Report from Study
  Country: TR (occurrence: TR)
  Receive Date: 20220706
  Receipt Date: 20221022
  Transmission Date: 20230113
  Serious: Yes (Hospitalization)
  Sender: FDA-Public Use
  Company Number: TR-ABBVIE-22K-161-4407481-00

PATIENT
  Age: 69 Year
  Sex: Female

DRUGS (4)
  1. CARBIDOPA\LEVODOPA [Suspect]
     Active Substance: CARBIDOPA\LEVODOPA
     Indication: Parkinson^s disease
     Dosage: MORNING DOSE (ML): 8.70 CONTINIOUS DOSE (ML): 4.30 EXTRA DOSE (ML): 1.00
     Route: 050
     Dates: start: 20210930, end: 20220520
  2. CARBIDOPA\LEVODOPA [Suspect]
     Active Substance: CARBIDOPA\LEVODOPA
     Dosage: MORNING DOSE (ML): 9.00 CONTINIOUS DOSE (ML): 4.50 EXTRA DOSE (ML): 1.20
     Route: 050
     Dates: start: 20220520, end: 20220604
  3. CARBIDOPA\LEVODOPA [Suspect]
     Active Substance: CARBIDOPA\LEVODOPA
     Dosage: MORNING DOSE (ML): 8.70 CONTINUOUS DOSE (ML): 4.90 EXTRA DOSE (ML): 1.00
     Route: 050
     Dates: start: 20220604
  4. DOPADEX SR [Concomitant]
     Indication: Parkinson^s disease
     Dosage: 25/100 MG
     Route: 048

REACTIONS (2)
  - Extremity contracture [Recovered/Resolved]
  - Bradykinesia [Recovered/Resolved]

NARRATIVE: CASE EVENT DATE: 20220520
